FAERS Safety Report 22598594 (Version 1)
Quarter: 2023Q2

REPORT INFORMATION
  Report Type: Other
  Country: IN (occurrence: None)
  Receive Date: 20230614
  Receipt Date: 20230614
  Transmission Date: 20230722
  Serious: Yes (Other)
  Sender: FDA-Public Use
  Company Number: IN-ROCHE-2873308

PATIENT
  Age: 62 Year
  Sex: Male

DRUGS (1)
  1. TECENTRIQ [Suspect]
     Active Substance: ATEZOLIZUMAB
     Indication: Non-small cell lung cancer metastatic
     Route: 041
     Dates: start: 20181103

REACTIONS (5)
  - Disease recurrence [Unknown]
  - Dyspnoea [Unknown]
  - Weight decreased [Unknown]
  - Pneumonia [Unknown]
  - Septic shock [Unknown]
